FAERS Safety Report 7961694-7 (Version None)
Quarter: 2011Q4

REPORT INFORMATION
  Report Type: 
  Country: None (occurrence: None)
  Receive Date: 20111207
  Receipt Date: 20111128
  Transmission Date: 20120403
  Serious: Yes (Other)
  Sender: FDA-Public Use
  Company Number: US-AMGEN-KDL370098

PATIENT
  Age: 35 Year
  Sex: Female

DRUGS (3)
  1. PRENATAL VITAMINS                  /01549301/ [Concomitant]
     Dosage: UNK
  2. ENBREL [Suspect]
     Indication: PSORIASIS
     Dosage: 25 MG, 2 TIMES/WK
  3. ENBREL [Suspect]
     Dosage: 50 MG, 2 TIMES/WK
     Route: 058

REACTIONS (6)
  - INFLUENZA [None]
  - VOMITING [None]
  - PREMATURE LABOUR [None]
  - PSORIASIS [None]
  - DIARRHOEA [None]
  - UTERINE LEIOMYOMA [None]
